FAERS Safety Report 4860749-3 (Version None)
Quarter: 2005Q4

REPORT INFORMATION
  Report Type: 
  Country: None (occurrence: None)
  Receive Date: 20051216
  Receipt Date: 20051205
  Transmission Date: 20060501
  Serious: Yes (Death, Hospitalization)
  Sender: FDA-Public Use
  Company Number: 2005158391

PATIENT
  Age: 3 Year
  Sex: Male
  Weight: 11.5 kg

DRUGS (16)
  1. ZYVOX [Suspect]
     Indication: STAPHYLOCOCCAL INFECTION
     Dosage: 300 MG (150 MG, 2 IN 1 D), INTRAVENOUS; 100 MG (2 IN 1 D), INTRAVENOUS
     Route: 042
     Dates: start: 20050505, end: 20050510
  2. ZYVOX [Suspect]
     Indication: STAPHYLOCOCCAL INFECTION
     Dosage: 300 MG (150 MG, 2 IN 1 D), INTRAVENOUS; 100 MG (2 IN 1 D), INTRAVENOUS
     Route: 042
     Dates: start: 20050511, end: 20050517
  3. TARGOCID [Concomitant]
  4. PAZUCROSS (PAZUFLOXACIN) [Concomitant]
  5. MICAFUNGIN (MICAFUNGIN) [Concomitant]
  6. LASIX [Concomitant]
  7. NICARDIPINE HCL [Concomitant]
  8. FOSMICIN (FOSFOMYCIN CALCIUM) [Concomitant]
  9. MIRACLID (ULINASTATIN) [Concomitant]
  10. COTRIM [Concomitant]
  11. ACYCLOVIR [Concomitant]
  12. URSODIOL [Concomitant]
  13. NEUTROGIN (LENOGRASTIM) [Concomitant]
  14. ARBEKACIN SULFATE (ARBEKACIN SULFATE) [Concomitant]
  15. VANCOMYCIN HYDROCHLORIDE [Concomitant]
  16. SANDIMMUNE [Concomitant]

REACTIONS (7)
  - ACUTE RESPIRATORY DISTRESS SYNDROME [None]
  - GASTROINTESTINAL CANDIDIASIS [None]
  - GRAFT VERSUS HOST DISEASE [None]
  - INFECTION IN AN IMMUNOCOMPROMISED HOST [None]
  - RENAL DISORDER [None]
  - RENAL FAILURE [None]
  - RESPIRATORY FAILURE [None]
